FAERS Safety Report 13138693 (Version 1)
Quarter: 2017Q1

REPORT INFORMATION
  Report Type: Spontaneous
  Country: US (occurrence: US)
  Receive Date: 20170123
  Receipt Date: 20170123
  Transmission Date: 20170428
  Serious: Yes (Hospitalization, Other)
  Sender: FDA-Public Use
  Company Number: US-HORIZON-RAV-0017-2017

PATIENT
  Age: 7 Year
  Sex: Female

DRUGS (8)
  1. RANITIDINE. [Concomitant]
     Active Substance: RANITIDINE
  2. KEPPRA [Concomitant]
     Active Substance: LEVETIRACETAM
  3. NUTREN JR [Concomitant]
  4. DUCAL [Concomitant]
  5. RAVICTI [Suspect]
     Active Substance: GLYCEROL PHENYLBUTYRATE
     Indication: ORNITHINE TRANSCARBAMOYLASE DEFICIENCY
     Dosage: 1.5 ML TID
  6. CLONAZEPAM. [Concomitant]
     Active Substance: CLONAZEPAM
  7. HYDROXYZINE [Concomitant]
     Active Substance: HYDROXYZINE HYDROCHLORIDE
  8. CYCLINEX 2 [Concomitant]

REACTIONS (2)
  - Cough [Unknown]
  - Hyperammonaemia [Recovered/Resolved]

NARRATIVE: CASE EVENT DATE: 20170109
